FAERS Safety Report 25215686 (Version 1)
Quarter: 2025Q2

REPORT INFORMATION
  Report Type: Spontaneous
  Country: FR (occurrence: FR)
  Receive Date: 20250418
  Receipt Date: 20250418
  Transmission Date: 20250716
  Serious: Yes (Life-Threatening, Other)
  Sender: MYLAN
  Company Number: None

PATIENT
  Age: 28 Year
  Sex: Male
  Weight: 74.5 kg

DRUGS (32)
  1. SERTRALINE [Suspect]
     Active Substance: SERTRALINE HYDROCHLORIDE
     Indication: Product used for unknown indication
     Dates: start: 20241018, end: 20241018
  2. SERTRALINE [Suspect]
     Active Substance: SERTRALINE HYDROCHLORIDE
     Route: 048
     Dates: start: 20241018, end: 20241018
  3. SERTRALINE [Suspect]
     Active Substance: SERTRALINE HYDROCHLORIDE
     Route: 048
     Dates: start: 20241018, end: 20241018
  4. SERTRALINE [Suspect]
     Active Substance: SERTRALINE HYDROCHLORIDE
     Dates: start: 20241018, end: 20241018
  5. TROPATEPINE HYDROCHLORIDE [Suspect]
     Active Substance: TROPATEPINE HYDROCHLORIDE
     Indication: Product used for unknown indication
     Dates: start: 20241018, end: 20241018
  6. TROPATEPINE HYDROCHLORIDE [Suspect]
     Active Substance: TROPATEPINE HYDROCHLORIDE
     Route: 048
     Dates: start: 20241018, end: 20241018
  7. TROPATEPINE HYDROCHLORIDE [Suspect]
     Active Substance: TROPATEPINE HYDROCHLORIDE
     Route: 048
     Dates: start: 20241018, end: 20241018
  8. TROPATEPINE HYDROCHLORIDE [Suspect]
     Active Substance: TROPATEPINE HYDROCHLORIDE
     Dates: start: 20241018, end: 20241018
  9. CAFFEINE\PHENOBARBITAL [Suspect]
     Active Substance: CAFFEINE\PHENOBARBITAL
     Indication: Product used for unknown indication
     Dates: start: 20241018, end: 20241018
  10. CAFFEINE\PHENOBARBITAL [Suspect]
     Active Substance: CAFFEINE\PHENOBARBITAL
     Route: 048
     Dates: start: 20241018, end: 20241018
  11. CAFFEINE\PHENOBARBITAL [Suspect]
     Active Substance: CAFFEINE\PHENOBARBITAL
     Route: 048
     Dates: start: 20241018, end: 20241018
  12. CAFFEINE\PHENOBARBITAL [Suspect]
     Active Substance: CAFFEINE\PHENOBARBITAL
     Dates: start: 20241018, end: 20241018
  13. ABILIFY [Suspect]
     Active Substance: ARIPIPRAZOLE
     Indication: Product used for unknown indication
     Dates: start: 20241018, end: 20241018
  14. ABILIFY [Suspect]
     Active Substance: ARIPIPRAZOLE
     Route: 048
     Dates: start: 20241018, end: 20241018
  15. ABILIFY [Suspect]
     Active Substance: ARIPIPRAZOLE
     Route: 048
     Dates: start: 20241018, end: 20241018
  16. ABILIFY [Suspect]
     Active Substance: ARIPIPRAZOLE
     Dates: start: 20241018, end: 20241018
  17. OXAZEPAM [Suspect]
     Active Substance: OXAZEPAM
     Indication: Product used for unknown indication
     Dates: start: 20241018, end: 20241018
  18. OXAZEPAM [Suspect]
     Active Substance: OXAZEPAM
     Route: 048
     Dates: start: 20241018, end: 20241018
  19. OXAZEPAM [Suspect]
     Active Substance: OXAZEPAM
     Route: 048
     Dates: start: 20241018, end: 20241018
  20. OXAZEPAM [Suspect]
     Active Substance: OXAZEPAM
     Dates: start: 20241018, end: 20241018
  21. IMOVANE [Suspect]
     Active Substance: ZOPICLONE
     Indication: Product used for unknown indication
     Dates: start: 20241018, end: 20241018
  22. IMOVANE [Suspect]
     Active Substance: ZOPICLONE
     Route: 048
     Dates: start: 20241018, end: 20241018
  23. IMOVANE [Suspect]
     Active Substance: ZOPICLONE
     Route: 048
     Dates: start: 20241018, end: 20241018
  24. IMOVANE [Suspect]
     Active Substance: ZOPICLONE
     Dates: start: 20241018, end: 20241018
  25. PRAZEPAM [Suspect]
     Active Substance: PRAZEPAM
     Indication: Product used for unknown indication
     Dates: start: 20241018, end: 20241018
  26. PRAZEPAM [Suspect]
     Active Substance: PRAZEPAM
     Route: 048
     Dates: start: 20241018, end: 20241018
  27. PRAZEPAM [Suspect]
     Active Substance: PRAZEPAM
     Route: 048
     Dates: start: 20241018, end: 20241018
  28. PRAZEPAM [Suspect]
     Active Substance: PRAZEPAM
     Dates: start: 20241018, end: 20241018
  29. LOXAPINE [Suspect]
     Active Substance: LOXAPINE
     Indication: Product used for unknown indication
     Dates: start: 20241018, end: 20241018
  30. LOXAPINE [Suspect]
     Active Substance: LOXAPINE
     Route: 048
     Dates: start: 20241018, end: 20241018
  31. LOXAPINE [Suspect]
     Active Substance: LOXAPINE
     Route: 048
     Dates: start: 20241018, end: 20241018
  32. LOXAPINE [Suspect]
     Active Substance: LOXAPINE
     Dates: start: 20241018, end: 20241018

REACTIONS (2)
  - Coma [Recovered/Resolved]
  - Poisoning deliberate [Unknown]

NARRATIVE: CASE EVENT DATE: 20241018
